FAERS Safety Report 6407608-2 (Version None)
Quarter: 2009Q4

REPORT INFORMATION
  Report Type: 
  Country: None (occurrence: None)
  Receive Date: 20091020
  Receipt Date: 20091013
  Transmission Date: 20100525
  Serious: No
  Sender: FDA-Public Use
  Company Number: US-B.I. PHARMACEUTICALS,INC./RIDGEFIELD-2009-BP-11068BP

PATIENT
  Sex: Female
  Weight: 70.31 kg

DRUGS (9)
  1. CATAPRES-TTS-1 [Suspect]
     Indication: HYPERTENSION
     Dosage: 0.3 MG
     Route: 061
     Dates: start: 20090501, end: 20090921
  2. LASIX [Concomitant]
     Indication: OEDEMA
  3. LOPRESSOR [Concomitant]
     Indication: HYPERTENSION
  4. ISORDIL [Concomitant]
     Indication: HYPERTENSION
  5. LISINOPRIL [Concomitant]
     Indication: HYPERTENSION
  6. PHOSLO [Concomitant]
  7. SYNTHROID [Concomitant]
     Indication: HYPOTHYROIDISM
  8. POTASSIUM CHLORIDE [Concomitant]
  9. INSULIN [Concomitant]
     Indication: TYPE 1 DIABETES MELLITUS

REACTIONS (2)
  - APPLICATION SITE ERYTHEMA [None]
  - APPLICATION SITE IRRITATION [None]
